FAERS Safety Report 23542133 (Version 10)
Quarter: 2025Q1

REPORT INFORMATION
  Report Type: Report from Study
  Country: US (occurrence: US)
  Receive Date: 20240220
  Receipt Date: 20250328
  Transmission Date: 20250408
  Serious: Yes (Hospitalization, Other)
  Sender: AMGEN
  Company Number: US-AMGEN-USASL2024031967

PATIENT
  Age: 41 Year
  Sex: Female
  Weight: 66.7 kg

DRUGS (50)
  1. KANJINTI [Suspect]
     Active Substance: TRASTUZUMAB-ANNS
     Indication: Product used for unknown indication
     Dosage: 420 MILLIGRAM, Q3WK (150 MILLIGRAM SINGLE-DOSE VIAL)
     Route: 040
     Dates: start: 20220328, end: 20220513
  2. KANJINTI [Suspect]
     Active Substance: TRASTUZUMAB-ANNS
     Dosage: 420 MILLIGRAM, Q3WK
     Route: 040
     Dates: start: 20220628
  3. KANJINTI [Suspect]
     Active Substance: TRASTUZUMAB-ANNS
     Route: 040
  4. KANJINTI [Suspect]
     Active Substance: TRASTUZUMAB-ANNS
     Dosage: 420 MILLIGRAM, Q3WK
     Route: 040
  5. KANJINTI [Suspect]
     Active Substance: TRASTUZUMAB-ANNS
     Route: 040
  6. KANJINTI [Suspect]
     Active Substance: TRASTUZUMAB-ANNS
     Route: 042
     Dates: start: 20240823
  7. KANJINTI [Suspect]
     Active Substance: TRASTUZUMAB-ANNS
     Route: 040
  8. KANJINTI [Suspect]
     Active Substance: TRASTUZUMAB-ANNS
     Route: 040
     Dates: start: 20250212, end: 20250212
  9. KANJINTI [Suspect]
     Active Substance: TRASTUZUMAB-ANNS
     Route: 040
     Dates: start: 20250313, end: 20250313
  10. TUKYSA [Concomitant]
     Active Substance: TUCATINIB
     Dosage: 150 MILLIGRAM, BID
     Route: 048
     Dates: start: 20220328
  11. XELODA [Concomitant]
     Active Substance: CAPECITABINE
     Dosage: 150 MILLIGRAM, BID (2 TABLETS FOR 14 DAYS ON; THEN 7 DAYS OFF. TAKE ALONG WITH 1 OTHER CAPECITABINE
     Route: 048
     Dates: start: 20220328, end: 202307
  12. XELODA [Concomitant]
     Active Substance: CAPECITABINE
     Route: 048
  13. XELODA [Concomitant]
     Active Substance: CAPECITABINE
     Dosage: 500 MILLIGRAM, BID (3 TABLETS FOR 14 DAYS ON; THEN 7 DAYS OFF. TAKE ALONG WITH 1 OTHER CAPECITABINE
     Route: 048
  14. XELODA [Concomitant]
     Active Substance: CAPECITABINE
     Dosage: 150 MILLIGRAM, BID (2 TABLETS FOR 14 DAYS ON; THEN 7 DAYS OFF. TAKE ALONG WITH 1 OTHER CAPECITABINE
     Route: 048
     Dates: start: 2023, end: 202310
  15. XELODA [Concomitant]
     Active Substance: CAPECITABINE
     Dosage: 150 MILLIGRAM, BID (2 TABLETS FOR 14 DAYS ON; THEN 7 DAYS OFF. TAKE ALONG WITH 1 OTHER CAPECITABINE
     Route: 048
  16. XELODA [Concomitant]
     Active Substance: CAPECITABINE
     Dosage: 500 MILLIGRAM, BID (1 TABLETS FOR 14 DAYS ON; THEN 7 DAYS OFF. TAKE ALONG WITH 1 OTHER CAPECITABINE
     Route: 048
  17. XELODA [Concomitant]
     Active Substance: CAPECITABINE
     Dosage: 625 MILLIGRAM, BID
     Route: 048
  18. DOCETAXEL [Concomitant]
     Active Substance: DOCETAXEL
  19. NOLVADEX [Concomitant]
     Active Substance: TAMOXIFEN CITRATE
     Dosage: 20 MILLIGRAM, QD
     Route: 048
  20. OXYCODONE [Concomitant]
     Active Substance: OXYCODONE
  21. DIETARY SUPPLEMENT [Concomitant]
     Active Substance: DIETARY SUPPLEMENT
     Dosage: 1 DOSAGE FORM, BID
     Route: 048
  22. VOLTAREN [Concomitant]
     Active Substance: DICLOFENAC SODIUM
     Indication: Pain in extremity
  23. Vibra [Concomitant]
     Indication: Nail infection
     Dosage: 100 MILLIGRAM, BID (FOR 5 DAYS)
     Route: 048
  24. DURAGESIC [Concomitant]
     Active Substance: FENTANYL
  25. DURAGESIC [Concomitant]
     Active Substance: FENTANYL
  26. DURAGESIC [Concomitant]
     Active Substance: FENTANYL
  27. DURAGESIC [Concomitant]
     Active Substance: FENTANYL
  28. ATROVENT [Concomitant]
     Active Substance: IPRATROPIUM BROMIDE
     Indication: Rhinorrhoea
     Dosage: 21 MICROGRAM (ONE SPRAY IN EACH NOSTRIL), TID, AS NEEDED
  29. ROBAXIN [Concomitant]
     Active Substance: METHOCARBAMOL
     Dosage: 500 MILLIGRAM, BID
     Route: 048
  30. BACTROBAN [Concomitant]
     Active Substance: MUPIROCIN CALCIUM
     Indication: Rhinalgia
     Dosage: 2% APPLY WITHIN EACH NOSTRIL, BID
  31. BACTROBAN [Concomitant]
     Active Substance: MUPIROCIN CALCIUM
     Indication: Nasal crusting
  32. NALOXONE [Concomitant]
     Active Substance: NALOXONE
  33. MACROBID [Concomitant]
     Active Substance: NITROFURANTOIN\NITROFURANTOIN MONOHYDRATE
     Dosage: 100 MILLIGRAM, BID FOR 7 DAYS
  34. OCUFLOX [Concomitant]
     Active Substance: OFLOXACIN
     Dosage: 2 DROPS IN EACH EYE, QID
     Route: 047
  35. ZOFRAN [Concomitant]
     Active Substance: ONDANSETRON HYDROCHLORIDE
     Indication: Nausea
     Dosage: 8 MILLIGRAM, Q8H, AS NEEDED
     Route: 048
  36. ROXICODONE [Concomitant]
     Active Substance: OXYCODONE HYDROCHLORIDE
     Dosage: 10 MILLIGRAM, TID
  37. PERCOCET [Concomitant]
     Active Substance: ACETAMINOPHEN\OXYCODONE HYDROCHLORIDE
     Indication: Pain
     Dosage: 10-325 MILLIGRAM 1 TABLET, Q6H
     Route: 048
  38. VEETIDS [Concomitant]
     Active Substance: PENICILLIN V POTASSIUM
     Dosage: 500 MILLIGRAM, TID FOR 7 DAYS
     Route: 048
  39. POLYTRIM [Concomitant]
     Active Substance: POLYMYXIN B SULFATE\TRIMETHOPRIM SULFATE
     Dosage: ONE DROP IN LEFT EYE, Q6H
     Route: 047
  40. DELTASONE [Concomitant]
     Active Substance: PREDNISONE
     Dosage: 20 MILLIGRAM, BID
     Route: 048
  41. COMPAZINE [Concomitant]
     Active Substance: PROCHLORPERAZINE MALEATE
     Indication: Nausea
     Dosage: 10 MILLIGRAM, Q6H
  42. PROMETHAZINE DM [Concomitant]
     Active Substance: DEXTROMETHORPHAN HYDROBROMIDE\PROMETHAZINE HYDROCHLORIDE
     Indication: Cough
     Dosage: 5 MILLILITER, QID
     Route: 048
  43. Carmol [Concomitant]
     Dosage: APPLY ON AFFECTED AREA, BID
  44. SODIUM CHLORIDE [Concomitant]
     Active Substance: SODIUM CHLORIDE
     Route: 042
     Dates: start: 20231208, end: 20231208
  45. SODIUM CHLORIDE [Concomitant]
     Active Substance: SODIUM CHLORIDE
  46. TAMOXIFEN [Concomitant]
     Active Substance: TAMOXIFEN
     Dosage: 20 MILLIGRAM, QD
  47. AMBIEN [Concomitant]
     Active Substance: ZOLPIDEM TARTRATE
     Indication: Sleep disorder
     Route: 048
  48. HERCEPTIN [Concomitant]
     Active Substance: TRASTUZUMAB
  49. XANAX [Concomitant]
     Active Substance: ALPRAZOLAM
     Indication: Sleep disorder
     Route: 048
  50. CHLORHEXIDINE [Concomitant]
     Active Substance: CHLORHEXIDINE

REACTIONS (15)
  - Palmar-plantar erythrodysaesthesia syndrome [Unknown]
  - Dizziness [Unknown]
  - Cancer pain [Recovering/Resolving]
  - Confusional state [Unknown]
  - Pneumonia [Unknown]
  - Central nervous system lesion [Unknown]
  - Amnesia [Unknown]
  - Pharyngitis streptococcal [Unknown]
  - Vomiting [Unknown]
  - Full blood count abnormal [Unknown]
  - Metabolic function test abnormal [Unknown]
  - Mean cell volume increased [Unknown]
  - Lymphocyte count decreased [Unknown]
  - Infusion site pain [Unknown]
  - Infusion site pruritus [Unknown]

NARRATIVE: CASE EVENT DATE: 20230221
